FAERS Safety Report 14498398 (Version 1)
Quarter: 2018Q1

REPORT INFORMATION
  Report Type: Other
  Country: DK (occurrence: DK)
  Receive Date: 20180207
  Receipt Date: 20180207
  Transmission Date: 20180509
  Serious: Yes (Other)
  Sender: FDA-Public Use
  Company Number: DK-CELLTRION INC.-2018DK017683

PATIENT
  Age: 54 Year
  Sex: Female

DRUGS (5)
  1. REMSIMA [Suspect]
     Active Substance: INFLIXIMAB
     Dosage: 250 MG
     Route: 042
     Dates: start: 20160121, end: 20160121
  2. REMSIMA [Suspect]
     Active Substance: INFLIXIMAB
     Dosage: 250 MG
     Route: 042
     Dates: start: 20151210, end: 20151210
  3. REMSIMA [Suspect]
     Active Substance: INFLIXIMAB
     Dosage: 250 MG
     Route: 042
     Dates: start: 20160321, end: 20160321
  4. REMSIMA [Suspect]
     Active Substance: INFLIXIMAB
     Indication: CROHN^S DISEASE
     Dosage: 250 MG
     Route: 042
     Dates: start: 20151125, end: 20151125
  5. HUMIRA [Suspect]
     Active Substance: ADALIMUMAB
     Indication: CROHN^S DISEASE
     Dosage: ()
     Route: 065
     Dates: start: 20160523, end: 20160606

REACTIONS (19)
  - Wound secretion [Unknown]
  - Psychiatric symptom [Unknown]
  - Cough [Unknown]
  - Eczema [Unknown]
  - Dermatitis psoriasiform [Unknown]
  - Skin exfoliation [Unknown]
  - Psoriatic arthropathy [Unknown]
  - Pain [Unknown]
  - Fatigue [Unknown]
  - Rash [Unknown]
  - Malaise [Unknown]
  - Back pain [Unknown]
  - Rash pruritic [Unknown]
  - Mental disorder [Unknown]
  - Inappropriate schedule of drug administration [Unknown]
  - Asthma [Not Recovered/Not Resolved]
  - Disturbance in social behaviour [Unknown]
  - Lung disorder [Unknown]
  - Pruritus [Unknown]

NARRATIVE: CASE EVENT DATE: 20161130
